FAERS Safety Report 19105101 (Version 3)
Quarter: 2021Q2

REPORT INFORMATION
  Report Type: Spontaneous
  Country: JP (occurrence: JP)
  Receive Date: 20210407
  Receipt Date: 20210617
  Transmission Date: 20210717
  Serious: Yes (Death, Life-Threatening, Hospitalization, Other)
  Sender: FDA-Public Use
  Company Number: JP-BRISTOL-MYERS SQUIBB COMPANY-BMS-2021-025472

PATIENT
  Age: 71 Year
  Sex: Male
  Weight: 41.9 kg

DRUGS (2)
  1. OPDIVO [Suspect]
     Active Substance: NIVOLUMAB
     Indication: NON-SMALL CELL LUNG CANCER RECURRENT
     Dosage: 360 MILLIGRAM, Q3WK
     Route: 041
     Dates: start: 20210108, end: 20210219
  2. YERVOY [Suspect]
     Active Substance: IPILIMUMAB
     Indication: NON-SMALL CELL LUNG CANCER RECURRENT
     Dosage: 50 MILLIGRAM, Q6WK
     Route: 041
     Dates: start: 20210108, end: 20210219

REACTIONS (4)
  - Drug-induced liver injury [Fatal]
  - Altered state of consciousness [Unknown]
  - Large intestine perforation [Fatal]
  - Diarrhoea [Fatal]

NARRATIVE: CASE EVENT DATE: 20210212
